FAERS Safety Report 9792371 (Version 1)
Quarter: 2014Q1

REPORT INFORMATION
  Report Type: Spontaneous
  Country: US (occurrence: US)
  Receive Date: 20140102
  Receipt Date: 20140102
  Transmission Date: 20141002
  Serious: No
  Sender: FDA-Public Use
  Company Number: US-BIOGENIDEC-2013BI123201

PATIENT
  Age: 54 Year
  Sex: Female

DRUGS (11)
  1. TECFIDERA [Suspect]
     Indication: MULTIPLE SCLEROSIS
     Route: 048
     Dates: start: 20130619
  2. AMITRIPTYLINE HCL [Concomitant]
  3. CITRACAL/VITAMIN D [Concomitant]
  4. CLIMARA [Concomitant]
  5. CLONAZEPAM [Concomitant]
  6. DICYCLOMINE HCL [Concomitant]
  7. ESTRACE [Concomitant]
  8. GAS-X EXTRA STRENGTH [Concomitant]
  9. IMODIUM A-D [Concomitant]
  10. LIALDA [Concomitant]
  11. NEURONTIN [Concomitant]

REACTIONS (1)
  - Neutropenia [Unknown]
